FAERS Safety Report 5393287-2 (Version None)
Quarter: 2007Q3

REPORT INFORMATION
  Report Type: 
  Country: None (occurrence: None)
  Receive Date: 20070723
  Receipt Date: 20070713
  Transmission Date: 20080115
  Serious: Yes (Other)
  Sender: FDA-Public Use
  Company Number: PHBS2007JP11965

PATIENT
  Sex: Female

DRUGS (1)
  1. RITALIN [Suspect]
     Indication: FATIGUE
     Dosage: 10 MG/DAY
     Route: 048
     Dates: end: 20070601

REACTIONS (5)
  - DIARRHOEA [None]
  - DIZZINESS [None]
  - HEADACHE [None]
  - NAUSEA [None]
  - PHOTOPHOBIA [None]
